FAERS Safety Report 6723302-2 (Version None)
Quarter: 2010Q2

REPORT INFORMATION
  Report Type: 
  Country: None (occurrence: None)
  Receive Date: 20100513
  Receipt Date: 20100503
  Transmission Date: 20101027
  Serious: Yes (Disabling, Other)
  Sender: FDA-Public Use
  Company Number: US-WYE-H13885410

PATIENT
  Sex: Male

DRUGS (2)
  1. EFFEXOR [Suspect]
     Indication: ANXIETY
     Route: 048
     Dates: start: 19990801, end: 20090101
  2. EFFEXOR [Suspect]
     Indication: DEPRESSION

REACTIONS (6)
  - AURICULAR SWELLING [None]
  - DEAFNESS NEUROSENSORY [None]
  - EAR DISCOMFORT [None]
  - EAR PAIN [None]
  - SKIN EXFOLIATION [None]
  - TINNITUS [None]
